FAERS Safety Report 14224056 (Version 1)
Quarter: 2017Q4

REPORT INFORMATION
  Report Type: Spontaneous
  Country: US (occurrence: US)
  Receive Date: 20171124
  Receipt Date: 20171124
  Transmission Date: 20180321
  Serious: Yes (Other)
  Sender: FDA-Public Use
  Company Number: None

PATIENT
  Age: 48 Year
  Sex: Female
  Weight: 96.75 kg

DRUGS (19)
  1. L-TRYPTOPHAN [Concomitant]
     Active Substance: TRYPTOPHAN
  2. VITAMIN B COMPLEX [Concomitant]
     Active Substance: CYANOCOBALAMIN\DEXPANTHENOL\NIACINAMIDE\PYRIDOXINE HYDROCHLORIDE\RIBOFLAVIN 5^-PHOSPHATE SODIUM\THIAMINE HYDROCHLORIDE\VITAMIN B COMPLEX
  3. IBUPROFEN. [Concomitant]
     Active Substance: IBUPROFEN
  4. DAILY MULTI-VITAMIN [Concomitant]
     Active Substance: VITAMINS
  5. GABAPENTIN. [Concomitant]
     Active Substance: GABAPENTIN
  6. TIZANIDINE. [Concomitant]
     Active Substance: TIZANIDINE
  7. BACLOFEN. [Concomitant]
     Active Substance: BACLOFEN
  8. VOLTAREN [Concomitant]
     Active Substance: DICLOFENAC SODIUM
  9. ACETAMINOPHEN. [Concomitant]
     Active Substance: ACETAMINOPHEN
  10. VYVANSE [Concomitant]
     Active Substance: LISDEXAMFETAMINE DIMESYLATE
  11. MELATONIN [Concomitant]
     Active Substance: MELATONIN
  12. MELOXICAM. [Concomitant]
     Active Substance: MELOXICAM
  13. VITAMIN D [Concomitant]
     Active Substance: CHOLECALCIFEROL
  14. MAGNESIUM [Concomitant]
     Active Substance: MAGNESIUM
  15. GAMUNEX-C [Suspect]
     Active Substance: HUMAN IMMUNOGLOBULIN G
     Indication: CHRONIC INFLAMMATORY DEMYELINATING POLYRADICULONEUROPATHY
     Route: 042
     Dates: start: 20170731, end: 20170801
  16. DOXYLAMINE SUCCINATE. [Concomitant]
     Active Substance: DOXYLAMINE SUCCINATE
  17. BUPROPION XL [Concomitant]
     Active Substance: BUPROPION
  18. RANITIDINE. [Concomitant]
     Active Substance: RANITIDINE
  19. DIPENHYDRAMINE [Concomitant]

REACTIONS (2)
  - Medication error [None]
  - Meningitis aseptic [None]

NARRATIVE: CASE EVENT DATE: 20170802
